FAERS Safety Report 15326159 (Version 3)
Quarter: 2019Q1

REPORT INFORMATION
  Report Type: Report from Study
  Country: JP (occurrence: JP)
  Receive Date: 20180828
  Receipt Date: 20190318
  Transmission Date: 20190417
  Serious: Yes (Death)
  Sender: FDA-Public Use
  Company Number: JP-JNJFOC-20180836347

PATIENT
  Age: 90 Year
  Sex: Male
  Weight: 48.3 kg

DRUGS (1)
  1. IMBRUVICA [Suspect]
     Active Substance: IBRUTINIB
     Indication: CHRONIC LYMPHOCYTIC LEUKAEMIA REFRACTORY
     Route: 048
     Dates: start: 20170502, end: 20170505

REACTIONS (2)
  - Septic shock [Fatal]
  - Haemolytic anaemia [Fatal]

NARRATIVE: CASE EVENT DATE: 20170505
